FAERS Safety Report 10021024 (Version 1)
Quarter: 2014Q1

REPORT INFORMATION
  Report Type: Spontaneous
  Country: US (occurrence: None)
  Receive Date: 20140318
  Receipt Date: 20140318
  Transmission Date: 20141002
  Serious: Yes (Hospitalization)
  Sender: FDA-Public Use
  Company Number: None

PATIENT
  Age: 56 Year
  Sex: Male

DRUGS (1)
  1. ENBREL SURECLICK 50MG/ML AMGEN [Suspect]
     Indication: PSORIATIC ARTHROPATHY
     Dosage: 50MG  ONCE WEEKLY SQ
     Route: 058
     Dates: start: 20070306

REACTIONS (1)
  - Arthritis infective [None]
